FAERS Safety Report 6801017-X (Version None)
Quarter: 2010Q2

REPORT INFORMATION
  Report Type: 
  Country: None (occurrence: None)
  Receive Date: 20100629
  Receipt Date: 20100615
  Transmission Date: 20101027
  Serious: Yes (Hospitalization)
  Sender: FDA-Public Use
  Company Number: PHHY2010FR39485

PATIENT
  Sex: Female

DRUGS (13)
  1. TAREG [Suspect]
     Indication: HYPERTENSION
     Dosage: 160 MG, QD
     Route: 048
  2. RIVOTRIL [Suspect]
     Indication: SLEEP DISORDER
     Dosage: 15 MG, QD
     Route: 048
  3. CORTANCYL [Suspect]
     Indication: SLEEP DISORDER
     Dosage: 10 MG, QD
     Route: 048
  4. ARAVA [Suspect]
     Indication: RHEUMATOID ARTHRITIS
     Dosage: 20 MG, QD
     Route: 048
     Dates: start: 20020101, end: 20091210
  5. HUMIRA [Suspect]
     Indication: RHEUMATOID ARTHRITIS
     Dosage: 2X40 MG/MONTH
     Dates: start: 20090401, end: 20100301
  6. MOPRAL [Suspect]
     Indication: SLEEP DISORDER
     Dosage: 20 MG, QD
     Route: 048
  7. CITALOPRAM HYDROBROMIDE [Suspect]
     Indication: DEPRESSION
     Dosage: 20 MG, QD
     Route: 048
  8. XANAX [Suspect]
     Indication: ANXIETY
     Dosage: 0.5 MG, QD
     Route: 048
  9. ACTONEL [Suspect]
     Dosage: 35 MG, QW
     Route: 048
  10. TEMERIT [Suspect]
     Dosage: 5 MG, QD
     Route: 048
  11. DAFALGAN [Suspect]
     Dosage: UNK
     Route: 048
  12. CHOLESTYRAMINE [Concomitant]
  13. ENBREL [Concomitant]

REACTIONS (4)
  - GAIT DISTURBANCE [None]
  - GASTROINTESTINAL DISORDER [None]
  - MUSCULAR WEAKNESS [None]
  - NEUROPATHY PERIPHERAL [None]
